FAERS Safety Report 19800794 (Version 1)
Quarter: 2021Q3

REPORT INFORMATION
  Report Type: Spontaneous
  Country: US (occurrence: US)
  Receive Date: 20210907
  Receipt Date: 20210907
  Transmission Date: 20211014
  Serious: No
  Sender: FDA-Public Use
  Company Number: US-ALXN-A202109879

PATIENT
  Sex: Female

DRUGS (2)
  1. SOLIRIS [Suspect]
     Active Substance: ECULIZUMAB
     Indication: MYASTHENIA GRAVIS
     Dosage: UNK
     Route: 065
     Dates: start: 20190415
  2. SOLIRIS [Suspect]
     Active Substance: ECULIZUMAB
     Dosage: INCREASED FREQUENCY OF ADMINISTRATI ON OF SOLIRIS
     Route: 065
     Dates: start: 20210527

REACTIONS (2)
  - Insomnia [Recovering/Resolving]
  - Therapeutic response shortened [Unknown]
